FAERS Safety Report 23649379 (Version 5)
Quarter: 2025Q3

REPORT INFORMATION
  Report Type: Report from Study
  Country: EU (occurrence: EU)
  Receive Date: 20240319
  Receipt Date: 20250717
  Transmission Date: 20251021
  Serious: Yes (Other)
  Sender: TAKEDA
  Company Number: EU-TAKEDA-2024TUS024462

PATIENT
  Sex: Female

DRUGS (2)
  1. VELAGLUCERASE ALFA [Suspect]
     Active Substance: VELAGLUCERASE ALFA
     Indication: Gaucher^s disease type I
     Dosage: 14 DOSAGE FORM, Q3WEEKS
     Dates: start: 200504
  2. VELAGLUCERASE ALFA [Suspect]
     Active Substance: VELAGLUCERASE ALFA
     Dosage: UNK UNK, Q3WEEKS
     Dates: start: 2005

REACTIONS (16)
  - Nausea [Unknown]
  - Visual field defect [Unknown]
  - Accommodation disorder [Unknown]
  - Injury [Recovered/Resolved]
  - Gait disturbance [Recovered/Resolved]
  - COVID-19 [Recovered/Resolved]
  - Family stress [Recovering/Resolving]
  - Anxiety [Not Recovered/Not Resolved]
  - Insomnia [Not Recovered/Not Resolved]
  - Dermatitis atopic [Recovering/Resolving]
  - Arthralgia [Recovered/Resolved]
  - Herpes zoster [Unknown]
  - Neurodermatitis [Recovering/Resolving]
  - Fall [Unknown]
  - Wrist fracture [Recovered/Resolved]
  - Incorrect drug administration rate [Unknown]

NARRATIVE: CASE EVENT DATE: 20230101
